FAERS Safety Report 4464093-8 (Version None)
Quarter: 2004Q3

REPORT INFORMATION
  Report Type: 
  Country: None (occurrence: None)
  Receive Date: 20040929
  Receipt Date: 20040929
  Transmission Date: 20050211
  Serious: Yes (Other)
  Sender: FDA-Public Use
  Company Number: None

PATIENT
  Sex: Female
  Weight: 163.2949 kg

DRUGS (3)
  1. COUMADIN [Suspect]
     Indication: DEEP VEIN THROMBOSIS
     Dosage: 10 MG/PO QD
     Route: 048
  2. COUMADIN [Suspect]
     Indication: PAIN IN EXTREMITY
     Dosage: 10 MG/PO QD
     Route: 048
  3. PAIN MEDICATION [Concomitant]

REACTIONS (1)
  - RASH PRURITIC [None]
